FAERS Safety Report 13919021 (Version 1)
Quarter: 2017Q3

REPORT INFORMATION
  Report Type: Spontaneous
  Country: US (occurrence: US)
  Receive Date: 20170830
  Receipt Date: 20170830
  Transmission Date: 20171127
  Serious: No
  Sender: FDA-Public Use
  Company Number: US-ROCHE-1983057

PATIENT
  Sex: Female

DRUGS (1)
  1. OCREVUS [Suspect]
     Active Substance: OCRELIZUMAB
     Indication: PRIMARY PROGRESSIVE MULTIPLE SCLEROSIS
     Dosage: 300 MG INFUSIONS-THE SPLIT DOSE PROTOCOL
     Route: 065

REACTIONS (3)
  - Urinary tract infection [Unknown]
  - B-lymphocyte count decreased [Unknown]
  - Infection [Unknown]
